FAERS Safety Report 5191107-2 (Version None)
Quarter: 2006Q4

REPORT INFORMATION
  Report Type: 
  Country: None (occurrence: None)
  Receive Date: 20061226
  Receipt Date: 20061218
  Transmission Date: 20070319
  Serious: Yes (Hospitalization)
  Sender: FDA-Public Use
  Company Number: PHBS2006FR19494

PATIENT
  Age: 81 Year
  Sex: Female

DRUGS (6)
  1. LOPRESSOR [Suspect]
     Indication: HYPERTENSION
     Dosage: 200 MG/DAY
     Route: 048
     Dates: start: 19900615, end: 20061125
  2. DILTIAZEM HCL [Suspect]
     Dosage: 120 MG, UNK
     Route: 048
     Dates: start: 19900615, end: 20061125
  3. AMIODARONE HCL [Suspect]
     Dosage: 200 MG, UNK
     Route: 048
     Dates: start: 20060915, end: 20061125
  4. FLECAINIDE ACETATE [Suspect]
     Dosage: 100 MG, UNK
     Route: 048
     Dates: start: 20060915, end: 20061125
  5. ASPIRIN [Concomitant]
     Dosage: 100 MG, UNK
     Route: 048
  6. PREVISCAN [Concomitant]

REACTIONS (13)
  - ATRIOVENTRICULAR BLOCK SECOND DEGREE [None]
  - BRADYCARDIA [None]
  - DYSPNOEA [None]
  - ECHOCARDIOGRAM ABNORMAL [None]
  - EJECTION FRACTION DECREASED [None]
  - ELECTROCARDIOGRAM ABNORMAL [None]
  - HYPOTENSION [None]
  - LEFT VENTRICULAR FAILURE [None]
  - MITRAL VALVE INCOMPETENCE [None]
  - ORTHOPNOEA [None]
  - SINUS ARREST [None]
  - SUPRAVENTRICULAR EXTRASYSTOLES [None]
  - SYNCOPE [None]
